FAERS Safety Report 10969141 (Version 5)
Quarter: 2015Q2

REPORT INFORMATION
  Report Type: Spontaneous
  Country: PL (occurrence: PL)
  Receive Date: 20150331
  Receipt Date: 20150506
  Transmission Date: 20150821
  Serious: Yes (Hospitalization, Other)
  Sender: FDA-Public Use
  Company Number: PL-IPSEN BIOPHARMACEUTICALS, INC.-2015-1742

PATIENT
  Age: 36 Year
  Sex: Female

DRUGS (4)
  1. AZZALURE [Suspect]
     Active Substance: BOTULINUM TOXIN TYPE A
     Indication: SKIN WRINKLING
     Dosage: 75 UNITS
     Route: 030
     Dates: start: 20140729, end: 20140729
  2. AZZALURE [Suspect]
     Active Substance: BOTULINUM TOXIN TYPE A
     Indication: SKIN WRINKLING
  3. TEOSYAL REDENITY II [Suspect]
     Active Substance: HYALURONIC ACID
     Indication: SKIN COSMETIC PROCEDURE
     Route: 065
     Dates: start: 20140729, end: 20140729
  4. AZZALURE [Suspect]
     Active Substance: BOTULINUM TOXIN TYPE A
     Indication: PRODUCT USE ISSUE

REACTIONS (55)
  - Vomiting [Unknown]
  - Dry mouth [Unknown]
  - Dry skin [Unknown]
  - Rash pustular [Unknown]
  - Oral herpes [Unknown]
  - Injection site pain [Unknown]
  - Dizziness [Unknown]
  - Paraesthesia [Unknown]
  - Diarrhoea [Unknown]
  - Erythema [Unknown]
  - Stress [Unknown]
  - Unevaluable event [Unknown]
  - Anti-thyroid antibody [Unknown]
  - Facial paresis [Unknown]
  - Muscular weakness [Unknown]
  - Pain in jaw [Unknown]
  - Oral discomfort [Unknown]
  - Glossodynia [Unknown]
  - Weight decreased [Unknown]
  - Nystagmus [Unknown]
  - Tremor [Unknown]
  - Swelling face [Unknown]
  - Hyperhidrosis [Unknown]
  - Gait disturbance [Unknown]
  - Venous occlusion [Unknown]
  - Headache [Unknown]
  - Rash [Unknown]
  - Skin discolouration [Unknown]
  - Pain [Unknown]
  - Musculoskeletal stiffness [Unknown]
  - Lid sulcus deepened [Unknown]
  - Lipodystrophy acquired [Unknown]
  - Pruritus [Unknown]
  - Alopecia [Unknown]
  - Muscle disorder [Unknown]
  - Oedema [Unknown]
  - Skin lesion [Unknown]
  - Blood iron decreased [Unknown]
  - Speech disorder [Unknown]
  - Incorrect route of drug administration [Unknown]
  - Nausea [Unknown]
  - Abdominal pain upper [Unknown]
  - Hypoaesthesia [Unknown]
  - Asthenia [Unknown]
  - Ear discomfort [Unknown]
  - Gastrointestinal disorder [Unknown]
  - Neuromuscular toxicity [Unknown]
  - Eye pain [Unknown]
  - Botulism [Unknown]
  - Madarosis [Unknown]
  - Skin disorder [Unknown]
  - Depression [Unknown]
  - Dyspnoea [Unknown]
  - Eyelid oedema [Unknown]
  - Overdose [Unknown]

NARRATIVE: CASE EVENT DATE: 2014
